FAERS Safety Report 7249496-0 (Version None)
Quarter: 2011Q1

REPORT INFORMATION
  Report Type: 
  Country: None (occurrence: None)
  Receive Date: 20110121
  Receipt Date: 20110121
  Transmission Date: 20110831
  Serious: Yes (Hospitalization)
  Sender: FDA-Public Use
  Company Number: None

PATIENT
  Age: 55 Year
  Sex: Male
  Weight: 87 kg

DRUGS (2)
  1. COUMADIN [Suspect]
     Dosage: 1 TAB EVERY DAY PO
     Route: 048
     Dates: start: 20100928, end: 20101215
  2. NAPROXEN [Suspect]
     Dosage: 1 TAB BID PO
     Route: 048
     Dates: start: 20100806, end: 20101001

REACTIONS (5)
  - ANAEMIA [None]
  - LOWER GASTROINTESTINAL HAEMORRHAGE [None]
  - MELAENA [None]
  - PEPTIC ULCER [None]
  - GASTRIC HAEMORRHAGE [None]
